FAERS Safety Report 25241747 (Version 2)
Quarter: 2025Q2

REPORT INFORMATION
  Report Type: Spontaneous
  Country: FR (occurrence: FR)
  Receive Date: 20250426
  Receipt Date: 20250619
  Transmission Date: 20250716
  Serious: Yes (Death, Other)
  Sender: AUROBINDO
  Company Number: FR-BAYER-2025A044443

PATIENT
  Age: 31 Year
  Sex: Female

DRUGS (1)
  1. CIPROFLOXACIN [Suspect]
     Active Substance: CIPROFLOXACIN
     Indication: Product used for unknown indication
     Route: 048

REACTIONS (4)
  - Brain oedema [Fatal]
  - Brain herniation [Fatal]
  - Coma [Fatal]
  - Intracranial pressure increased [Fatal]
